FAERS Safety Report 6183549-3 (Version None)
Quarter: 2009Q2

REPORT INFORMATION
  Report Type: 
  Country: None (occurrence: None)
  Receive Date: 20090508
  Receipt Date: 20090421
  Transmission Date: 20091009
  Serious: Yes (Other)
  Sender: FDA-Public Use
  Company Number: CH-BAYER-200919929GPV

PATIENT
  Sex: Male
  Weight: 2.208 kg

DRUGS (4)
  1. INTERFERON BETA [Suspect]
     Indication: MALIGNANT MELANOMA
     Route: 064
  2. DACARBAZINE [Concomitant]
     Indication: MALIGNANT MELANOMA
     Route: 064
  3. NIMUSTINE [Concomitant]
     Indication: MALIGNANT MELANOMA
     Route: 064
  4. VINCRISTINE [Concomitant]
     Indication: MALIGNANT MELANOMA
     Route: 064

REACTIONS (3)
  - NO ADVERSE EVENT [None]
  - NORMAL NEWBORN [None]
  - PREMATURE BABY [None]
